FAERS Safety Report 8599145-4 (Version None)
Quarter: 2012Q3

REPORT INFORMATION
  Report Type: 
  Country: None (occurrence: None)
  Receive Date: 20120816
  Receipt Date: 19900226
  Transmission Date: 20120928
  Serious: Yes (Other)
  Sender: FDA-Public Use
  Company Number: US-ROCHE-CID000000002058384

PATIENT
  Age: 56 Year
  Sex: Female

DRUGS (10)
  1. NITROGLYCERIN [Concomitant]
  2. NITROGLYCERIN [Concomitant]
  3. HEPARIN [Concomitant]
     Dosage: 720 MICRON
     Route: 041
  4. NITROGLYCERIN [Concomitant]
  5. ACTIVASE [Suspect]
     Indication: MYOCARDIAL INFARCTION
     Route: 040
  6. ACTIVASE [Suspect]
     Dosage: 15 MG IN 80 CC D5W
  7. NITROGLYCERIN [Concomitant]
  8. ACTIVASE [Suspect]
     Route: 040
  9. NITROGLYCERIN [Concomitant]
  10. LIDOCAINE [Concomitant]

REACTIONS (3)
  - CHEST PAIN [None]
  - HYPERHIDROSIS [None]
  - OEDEMA PERIPHERAL [None]
